FAERS Safety Report 7448211-5 (Version None)
Quarter: 2011Q2

REPORT INFORMATION
  Report Type: 
  Country: None (occurrence: None)
  Receive Date: 20110429
  Receipt Date: 20100415
  Transmission Date: 20111010
  Serious: No
  Sender: FDA-Public Use
  Company Number: US-ASTRAZENECA-2010SE16731

PATIENT
  Sex: Female
  Weight: 90.7 kg

DRUGS (3)
  1. VITAMINS [Concomitant]
  2. NEXIUM [Suspect]
     Route: 048
     Dates: start: 20100115
  3. EVISTA [Concomitant]

REACTIONS (4)
  - DIVERTICULUM [None]
  - FREQUENT BOWEL MOVEMENTS [None]
  - ABDOMINAL PAIN [None]
  - DYSPEPSIA [None]
